FAERS Safety Report 6384409-5 (Version None)
Quarter: 2009Q3

REPORT INFORMATION
  Report Type: 
  Country: None (occurrence: None)
  Receive Date: 20090929
  Receipt Date: 20090918
  Transmission Date: 20100115
  Serious: Yes (Other)
  Sender: FDA-Public Use
  Company Number: 2009AL005715

PATIENT
  Age: 32 Year
  Sex: Female

DRUGS (6)
  1. ACYCLOVIR [Suspect]
     Indication: HERPES SIMPLEX
     Dosage: 400 MG; BID; PO
     Route: 048
     Dates: start: 20030429
  2. ACYCLOVIR [Suspect]
     Indication: PROPHYLAXIS
     Dosage: 400 MG; BID; PO
     Route: 048
     Dates: start: 20030429
  3. SULFATRIM PEDIATRIC [Suspect]
     Indication: PNEUMOCYSTIS JIROVECI INFECTION
     Dosage: 480 MG; QD; PO
     Route: 048
     Dates: start: 20030429, end: 20090804
  4. SULFATRIM PEDIATRIC [Suspect]
     Indication: PROPHYLAXIS
     Dosage: 480 MG; QD; PO
     Route: 048
     Dates: start: 20030429, end: 20090804
  5. COMBIVIR [Concomitant]
  6. EFAVIRENZ [Concomitant]

REACTIONS (4)
  - ABORTION MISSED [None]
  - DRUG EXPOSURE DURING PREGNANCY [None]
  - INTRA-UTERINE DEATH [None]
  - PREGNANCY [None]
